FAERS Safety Report 22098930 (Version 1)
Quarter: 2023Q1

REPORT INFORMATION
  Report Type: Spontaneous
  Country: US (occurrence: None)
  Receive Date: 20230315
  Receipt Date: 20230315
  Transmission Date: 20230418
  Serious: Yes (Other)
  Sender: FDA-Public Use
  Company Number: None

PATIENT
  Age: 31 Year
  Sex: Female
  Weight: 117 kg

DRUGS (2)
  1. SUPHEDRINE PE [Suspect]
     Active Substance: ACETAMINOPHEN\CHLORPHENIRAMINE MALEATE\DIPHENHYDRAMINE HYDROCHLORIDE\PHENYLEPHRINE HYDROCHLORIDE
     Indication: Sinusitis
     Dosage: OTHER QUANTITY : 1 TABLET(S);?FREQUENCY : EVERY 4 HOURS;?
     Route: 048
     Dates: start: 20230314, end: 20230315
  2. Prenatal supplement [Concomitant]

REACTIONS (5)
  - Ear pain [None]
  - Hypoacusis [None]
  - Ear discomfort [None]
  - Ear discomfort [None]
  - Drug ineffective [None]

NARRATIVE: CASE EVENT DATE: 20230314
